FAERS Safety Report 6203586-X (Version None)
Quarter: 2009Q2

REPORT INFORMATION
  Report Type: 
  Country: None (occurrence: None)
  Receive Date: 20090522
  Receipt Date: 20090522
  Transmission Date: 20091009
  Serious: No
  Sender: FDA-Public Use
  Company Number: None

PATIENT
  Age: 36 Year
  Sex: Female

DRUGS (1)
  1. BANZEL [Suspect]
     Indication: EPILEPSY
     Dosage: 800MG -2X400MG- BID OTHER
     Route: 050
     Dates: start: 20090412, end: 20090506

REACTIONS (2)
  - LYMPHADENOPATHY [None]
  - RASH [None]
